FAERS Safety Report 8840653 (Version 1)
Quarter: 2012Q4

REPORT INFORMATION
  Report Type: 
  Country: US (occurrence: US)
  Receive Date: 20121015
  Receipt Date: 20121015
  Transmission Date: 20130627
  Serious: Yes (Other)
  Sender: FDA-Public Use
  Company Number: US-PFIZER INC-2012253708

PATIENT
  Age: 71 Year
  Sex: Female

DRUGS (2)
  1. PREPARATION H [Suspect]
     Indication: HAEMORRHOIDS
     Dosage: UNK, 2x/day
     Route: 054
     Dates: start: 20120928, end: 20121011
  2. BABY ASPIRIN [Concomitant]
     Dosage: 81 mg, UNK

REACTIONS (3)
  - Haematochezia [Unknown]
  - Haemorrhage [Unknown]
  - Abnormal faeces [Unknown]
